FAERS Safety Report 9644254 (Version 1)
Quarter: 2013Q4

REPORT INFORMATION
  Report Type: Spontaneous
  Country: US (occurrence: US)
  Receive Date: 20131024
  Receipt Date: 20131024
  Transmission Date: 20140711
  Serious: Yes (Other)
  Sender: FDA-Public Use
  Company Number: US-ASTRAZENECA-2013SE77027

PATIENT
  Age: 70 Year
  Sex: Female

DRUGS (4)
  1. BRILINTA [Suspect]
     Indication: CHEST PAIN
     Route: 048
     Dates: start: 2013
  2. BRILINTA [Suspect]
     Indication: ARTERIAL CATHETERISATION
     Route: 048
     Dates: start: 2013
  3. ASPIRIN [Concomitant]
  4. EFFIENT [Concomitant]

REACTIONS (1)
  - Haemorrhagic stroke [Unknown]
